FAERS Safety Report 19824765 (Version 1)
Quarter: 2021Q3

REPORT INFORMATION
  Report Type: Spontaneous
  Country: US (occurrence: US)
  Receive Date: 20210913
  Receipt Date: 20210913
  Transmission Date: 20211014
  Serious: Yes (Death)
  Sender: FDA-Public Use
  Company Number: None

PATIENT
  Age: 56 Year
  Sex: Female

DRUGS (20)
  1. ONDANSETRON [Concomitant]
     Active Substance: ONDANSETRON
  2. GEMCITABINE 2 GM VIAL [Suspect]
     Active Substance: GEMCITABINE
     Indication: LUNG NEOPLASM MALIGNANT
  3. DOCETAXEL. [Concomitant]
     Active Substance: DOCETAXEL
  4. MAXITROL [Concomitant]
     Active Substance: DEXAMETHASONE\NEOMYCIN SULFATE\POLYMYXIN B SULFATE
  5. DIPHENHYDRAMINE. [Concomitant]
     Active Substance: DIPHENHYDRAMINE
  6. MAGCIT [Concomitant]
  7. PREDNISONE. [Concomitant]
     Active Substance: PREDNISONE
  8. CALCIUM PLUS D [Concomitant]
     Active Substance: CALCIUM\VITAMIN D
  9. MORPHINE [Concomitant]
     Active Substance: MORPHINE
  10. VITAMIN B6 [Concomitant]
     Active Substance: PYRIDOXINE HYDROCHLORIDE
  11. GEMCITABINE. [Concomitant]
     Active Substance: GEMCITABINE
  12. METOCLOPRAMIDE. [Concomitant]
     Active Substance: METOCLOPRAMIDE
  13. OXYCODONE [Concomitant]
     Active Substance: OXYCODONE
  14. BIOTIN [Concomitant]
     Active Substance: BIOTIN
  15. CYRAMZA [Concomitant]
     Active Substance: RAMUCIRUMAB
  16. ALOXI [Concomitant]
     Active Substance: PALONOSETRON HYDROCHLORIDE
  17. NORVASC [Concomitant]
     Active Substance: AMLODIPINE BESYLATE
  18. DEXAMETHASONE. [Concomitant]
     Active Substance: DEXAMETHASONE
  19. FOLIC ACID. [Concomitant]
     Active Substance: FOLIC ACID
  20. LISINOPRIL. [Concomitant]
     Active Substance: LISINOPRIL

REACTIONS (2)
  - Drug ineffective [None]
  - Malignant neoplasm progression [None]

NARRATIVE: CASE EVENT DATE: 20210829
